FAERS Safety Report 12203228 (Version 1)
Quarter: 2016Q1

REPORT INFORMATION
  Report Type: Spontaneous
  Country: US (occurrence: None)
  Receive Date: 20160321
  Receipt Date: 20160321
  Transmission Date: 20160526
  Serious: Yes (Hospitalization)
  Sender: FDA-Public Use
  Company Number: None

PATIENT
  Age: 23 Year
  Sex: Female

DRUGS (2)
  1. AZTREONAM. [Suspect]
     Active Substance: AZTREONAM
     Route: 042
  2. PROTONIX [Suspect]
     Active Substance: PANTOPRAZOLE SODIUM
     Route: 042

REACTIONS (5)
  - Clostridium test positive [None]
  - Asthenia [None]
  - Pneumonia [None]
  - Sepsis [None]
  - Syncope [None]

NARRATIVE: CASE EVENT DATE: 20150820
